FAERS Safety Report 7313635-3 (Version None)
Quarter: 2011Q1

REPORT INFORMATION
  Report Type: 
  Country: None (occurrence: None)
  Receive Date: 20110218
  Receipt Date: 20110218
  Transmission Date: 20110831
  Serious: Yes (Life-Threatening)
  Sender: FDA-Public Use
  Company Number: None

PATIENT
  Sex: Female

DRUGS (9)
  1. CETUXIMAB 2 MG/ML BRISTOL-MYERS SQUIBB [Suspect]
     Indication: NON-SMALL CELL LUNG CANCER
     Dosage: IV
     Route: 042
  2. PERCOCET [Concomitant]
  3. FENTANYL [Concomitant]
  4. CLONAZEPAM [Concomitant]
  5. SERTRALINE [Concomitant]
  6. TARCEVA [Concomitant]
  7. METOPROLOL SUCCINATE [Concomitant]
  8. DOXYCYCLINE [Concomitant]
  9. NEXIUM [Concomitant]

REACTIONS (8)
  - BLOOD PRESSURE IMMEASURABLE [None]
  - MALAISE [None]
  - HEART RATE INCREASED [None]
  - DRY SKIN [None]
  - FEELING COLD [None]
  - CHEST DISCOMFORT [None]
  - CYANOSIS [None]
  - VOMITING [None]
